FAERS Safety Report 10456711 (Version 1)
Quarter: 2014Q3

REPORT INFORMATION
  Report Type: Spontaneous
  Country: US (occurrence: US)
  Receive Date: 20140916
  Receipt Date: 20140916
  Transmission Date: 20150326
  Serious: No
  Sender: FDA-Public Use
  Company Number: US-BAYER-2014-134403

PATIENT
  Age: 59 Year
  Sex: Female

DRUGS (14)
  1. HYDROCODONE [HYDROCODONE] [Suspect]
     Active Substance: HYDROCODONE
     Dosage: 4 DF, QD
     Dates: end: 20140728
  2. LISINOPRIL. [Concomitant]
     Active Substance: LISINOPRIL
     Dosage: 120 MG, QD
  3. PROVENTIL [Concomitant]
     Active Substance: ALBUTEROL
     Dosage: 1 PUFF(S), HS
     Route: 055
  4. HYDROCHLOROTHIAZIDE. [Concomitant]
     Active Substance: HYDROCHLOROTHIAZIDE
     Dosage: 0.25 DF, QD
  5. ATORVASTATIN [Concomitant]
     Active Substance: ATORVASTATIN
     Dosage: UNK
     Dates: end: 20140728
  6. LIDODERM [Concomitant]
     Active Substance: LIDOCAINE
     Indication: BACK PAIN
     Dosage: UNK, PRN
  7. ALEVE [Suspect]
     Active Substance: NAPROXEN SODIUM
     Dosage: 3 DF, QD
     Route: 048
     Dates: end: 20140728
  8. PREMARIN [ESTROGENS CONJUGATED] [Concomitant]
     Dosage: 3.6 MG, QD
  9. TYLENOL EXTRA STRENGTH [Suspect]
     Active Substance: ACETAMINOPHEN
     Dosage: UNK, PRN
     Dates: end: 20140728
  10. ATORVASTATIN [Concomitant]
     Active Substance: ATORVASTATIN
     Dosage: UNK
     Dates: start: 20140728
  11. HUMIRA [Suspect]
     Active Substance: ADALIMUMAB
     Indication: PSORIASIS
     Dosage: 40 MG, BID
     Dates: start: 201406
  12. FENOFIBRATE. [Concomitant]
     Active Substance: FENOFIBRATE
     Dosage: 496 MG, QD
  13. METFORMIN [Concomitant]
     Active Substance: METFORMIN HYDROCHLORIDE
     Dosage: 3000 MG, QD
  14. NEXIUM [Concomitant]
     Active Substance: ESOMEPRAZOLE MAGNESIUM
     Dosage: 160 MG, QD

REACTIONS (3)
  - Hepatic enzyme increased [None]
  - Mobility decreased [Recovering/Resolving]
  - Arthralgia [Recovering/Resolving]

NARRATIVE: CASE EVENT DATE: 201407
